FAERS Safety Report 12807806 (Version 1)
Quarter: 2016Q4

REPORT INFORMATION
  Report Type: Spontaneous
  Country: US (occurrence: US)
  Receive Date: 20161004
  Receipt Date: 20161004
  Transmission Date: 20170207
  Serious: No
  Sender: FDA-Public Use
  Company Number: US-AMGEN-USASP2016068431

PATIENT

DRUGS (2)
  1. XGEVA [Suspect]
     Active Substance: DENOSUMAB
     Indication: BONE DISORDER
     Dosage: UNK, QMO
     Route: 065
     Dates: start: 201512
  2. ARIMIDEX [Concomitant]
     Active Substance: ANASTROZOLE
     Dosage: UNK
     Dates: start: 201411

REACTIONS (7)
  - Hot flush [Unknown]
  - Back pain [Unknown]
  - Arthralgia [Unknown]
  - Blood triglycerides increased [Unknown]
  - Asthenia [Unknown]
  - Night sweats [Unknown]
  - Insomnia [Unknown]
